FAERS Safety Report 21389241 (Version 1)
Quarter: 2022Q3

REPORT INFORMATION
  Report Type: Spontaneous
  Country: DE (occurrence: DE)
  Receive Date: 20220929
  Receipt Date: 20220929
  Transmission Date: 20221027
  Serious: Yes (Hospitalization)
  Sender: FDA-Public Use
  Company Number: DE-ADRED-06741-01

PATIENT
  Age: 85 Year
  Sex: Female
  Weight: 55 kg

DRUGS (13)
  1. HYDROCHLOROTHIAZIDE [Suspect]
     Active Substance: HYDROCHLOROTHIAZIDE
     Indication: Product used for unknown indication
     Dosage: 50 MILLIGRAM DAILY; 25 MG, 1-0-1-0
  2. CITALOPRAM [Suspect]
     Active Substance: CITALOPRAM HYDROBROMIDE
     Indication: Product used for unknown indication
     Dosage: .5 DOSAGE FORMS DAILY; 20 MG, 0.5-0-0-0
  3. TORSEMIDE [Suspect]
     Active Substance: TORSEMIDE
     Indication: Product used for unknown indication
     Dosage: 10 MILLIGRAM DAILY; 5 MG, 0-1-0-1
  4. METOPROLOL [Suspect]
     Active Substance: METOPROLOL
     Indication: Product used for unknown indication
     Dosage: 95 MILLIGRAM DAILY; 95 MG, 1-0-0-0
  5. CINNARIZINE\DIMENHYDRINATE [Suspect]
     Active Substance: CINNARIZINE\DIMENHYDRINATE
     Indication: Product used for unknown indication
     Dosage: 4 DOSAGE FORMS DAILY; 20|40 MG, 1-1-1-1
  6. TROSPIUM [Suspect]
     Active Substance: TROSPIUM
     Indication: Product used for unknown indication
     Dosage: 15 MILLIGRAM DAILY; 15 MG, 1-0-0-0
  7. CHOLECALCIFEROL [Concomitant]
     Active Substance: CHOLECALCIFEROL
     Indication: Product used for unknown indication
     Dosage: 20000 IU, ACCORDING TO THE SCHEME
  8. Cyanocobalamin (Vitamin B12) [Concomitant]
     Indication: Product used for unknown indication
     Dosage: ACCORDING TO SCHEME
  9. APIXABAN [Concomitant]
     Active Substance: APIXABAN
     Indication: Product used for unknown indication
     Dosage: 10 MILLIGRAM DAILY; 5 MG, 1-0-1-0,
  10. ATORVASTATIN [Concomitant]
     Active Substance: ATORVASTATIN
     Indication: Product used for unknown indication
     Dosage: .5 DOSAGE FORMS DAILY; 60 MG, 0-0-0.5-0
  11. RISEDRONIC ACID [Concomitant]
     Active Substance: RISEDRONIC ACID
     Indication: Product used for unknown indication
     Dosage: 35 MG, ACCORDING TO THE SCHEME  ,RISEDRONSAURE
  12. OMEPRAZOLE [Concomitant]
     Active Substance: OMEPRAZOLE
     Indication: Product used for unknown indication
     Dosage: 40 MILLIGRAM DAILY; 40 MG, 0-0-0-1
  13. SULPIRIDE [Concomitant]
     Active Substance: SULPIRIDE
     Indication: Product used for unknown indication
     Dosage: 50 MILLIGRAM DAILY; 50 MG, 1-0-0-0

REACTIONS (5)
  - Hypokalaemia [Unknown]
  - Fracture [Unknown]
  - Fall [Unknown]
  - Hyponatraemia [Unknown]
  - Spinal pain [Unknown]
